FAERS Safety Report 15129663 (Version 1)
Quarter: 2018Q3

REPORT INFORMATION
  Report Type: Spontaneous
  Country: US (occurrence: US)
  Receive Date: 20180615
  Receipt Date: 20180615
  Transmission Date: 20181010
  Serious: No
  Sender: FDA-Public Use
  Company Number: None

PATIENT
  Age: 67 Year
  Sex: Female

DRUGS (1)
  1. ENBREL [Suspect]
     Active Substance: ETANERCEPT
     Dates: start: 20180514, end: 20180615

REACTIONS (4)
  - Cough [None]
  - Drug dose omission [None]
  - Respiratory tract congestion [None]
  - Sinus congestion [None]

NARRATIVE: CASE EVENT DATE: 20180605
